FAERS Safety Report 4760854-6 (Version None)
Quarter: 2005Q3

REPORT INFORMATION
  Report Type: 
  Country: None (occurrence: None)
  Receive Date: 20050901
  Receipt Date: 20050822
  Transmission Date: 20060218
  Serious: Yes (Hospitalization, Other)
  Sender: FDA-Public Use
  Company Number: 2005118779

PATIENT
  Age: 49 Year
  Sex: Female
  Weight: 78.0187 kg

DRUGS (6)
  1. CELEBREX [Suspect]
     Indication: INTERVERTEBRAL DISC PROTRUSION
     Dosage: 200 MG, BID OR TID
  2. LIPITOR [Suspect]
     Indication: BLOOD CHOLESTEROL ABNORMAL
  3. GLUCOTROL [Concomitant]
  4. FLEXERIL [Concomitant]
  5. IBUPROFEN [Concomitant]
  6. ESTRADIOL [Concomitant]

REACTIONS (3)
  - CHEST PAIN [None]
  - LOSS OF EMPLOYMENT [None]
  - PAIN IN EXTREMITY [None]
